FAERS Safety Report 12655172 (Version 1)
Quarter: 2016Q3

REPORT INFORMATION
  Report Type: Spontaneous
  Country: FR (occurrence: FR)
  Receive Date: 20160816
  Receipt Date: 20160816
  Transmission Date: 20161109
  Serious: Yes (Other)
  Sender: FDA-Public Use
  Company Number: FR-JNJFOC-20160809090

PATIENT
  Age: 60 Year
  Sex: Female
  Weight: 51 kg

DRUGS (4)
  1. XGEVA [Suspect]
     Active Substance: DENOSUMAB
     Indication: PRODUCT USED FOR UNKNOWN INDICATION
     Dosage: 1 ADMINISTRATION AT DAY 1, DAY 8, DAY 15 AND DAY 29 AND THEN ONCE A MONTH
     Route: 058
     Dates: start: 20150929, end: 20160707
  2. CARBOPLATINE [Suspect]
     Active Substance: CARBOPLATIN
     Indication: PRODUCT USED FOR UNKNOWN INDICATION
     Dosage: TOTAL OF 6 COURSES ON 4-OCT-2015, 7-OCT-2015, 2-DEC-2015, 30-DEC, 10-FEB, 11-MAR-2016.
     Route: 042
     Dates: start: 20151007, end: 20160311
  3. ARIMIDEX [Concomitant]
     Active Substance: ANASTROZOLE
     Route: 048
     Dates: end: 201508
  4. CAELYX [Suspect]
     Active Substance: DOXORUBICIN HYDROCHLORIDE
     Indication: PRODUCT USED FOR UNKNOWN INDICATION
     Dosage: 30MG/M2=46MG/COURSE, A TOTAL OF 6 COURSE, ON 4-OCT, 7-OCT, 2-DEC-2015, 30-DEC, 10-FEB, 11-MAR-2016
     Route: 042
     Dates: start: 20151007, end: 20160311

REACTIONS (3)
  - Tendon disorder [Not Recovered/Not Resolved]
  - Tendonitis [Not Recovered/Not Resolved]
  - Tendon pain [Not Recovered/Not Resolved]

NARRATIVE: CASE EVENT DATE: 201607
